FAERS Safety Report 9439272 (Version 1)
Quarter: 2013Q3

REPORT INFORMATION
  Report Type: Spontaneous
  Country: FR (occurrence: FR)
  Receive Date: 20130804
  Receipt Date: 20130804
  Transmission Date: 20140515
  Serious: Yes (Hospitalization)
  Sender: FDA-Public Use
  Company Number: FR-ROCHE-1254445

PATIENT
  Age: 82 Year
  Sex: Male

DRUGS (11)
  1. MABTHERA [Suspect]
     Indication: LYMPHOMA
     Route: 065
     Dates: start: 20130618, end: 20130618
  2. DAUNORUBICIN [Suspect]
     Indication: LYMPHOMA
     Route: 065
     Dates: start: 20130617
  3. CYCLOPHOSPHAMIDE [Suspect]
     Indication: LYMPHOMA
     Route: 065
     Dates: start: 20130617
  4. ALLOPURINOL [Concomitant]
     Dosage: QD
     Route: 065
     Dates: start: 20130613, end: 20130618
  5. INEXIUM [Concomitant]
     Dosage: QD
     Route: 065
     Dates: start: 20130613, end: 20130618
  6. HAVLANE [Concomitant]
     Route: 065
     Dates: start: 20130613, end: 20130618
  7. TOPALGIC (FRANCE) [Concomitant]
     Route: 065
     Dates: start: 20130613, end: 20130618
  8. CORTANCYL [Concomitant]
     Dosage: QD
     Route: 065
     Dates: start: 20130613, end: 20130618
  9. LASILIX [Concomitant]
     Indication: LYMPHOMA
     Route: 065
  10. PREDNISONE [Concomitant]
     Route: 065
     Dates: start: 20130617
  11. VINCRISTINE [Concomitant]
     Route: 065
     Dates: start: 20130617

REACTIONS (3)
  - Musculoskeletal pain [Recovered/Resolved]
  - Dyspnoea [Recovered/Resolved]
  - Oxygen saturation decreased [Recovered/Resolved]
